FAERS Safety Report 21639327 (Version 1)
Quarter: 2022Q4

REPORT INFORMATION
  Report Type: Report from Study
  Country: AT (occurrence: AT)
  Receive Date: 20221124
  Receipt Date: 20221124
  Transmission Date: 20230112
  Serious: Yes (Hospitalization, Other)
  Sender: FDA-Public Use
  Company Number: AT-CELGENE-AUT-2016106375

PATIENT
  Age: 65 Year
  Sex: Male
  Weight: 56 kg

DRUGS (36)
  1. ABRAXANE [Suspect]
     Active Substance: PACLITAXEL
     Indication: Pancreatic carcinoma
     Dosage: FREQUENCY TEXT: DAY 1 AND 8?315 MILLIGRAM/SQ. METER
     Route: 042
     Dates: start: 20160921
  2. ABRAXANE [Suspect]
     Active Substance: PACLITAXEL
     Dosage: FREQUENCY TEXT: CYCLE DAY 1, 8 AND 15?536 MILLIGRAM/SQ. METER
     Route: 042
     Dates: start: 20161012
  3. ABRAXANE [Suspect]
     Active Substance: PACLITAXEL
     Dosage: FREQUENCY TEXT: DAY 1 AND 8?162 MG/M2?DURATION TEXT : CYCLE 3
     Route: 042
     Dates: start: 20161117
  4. ABRAXANE [Suspect]
     Active Substance: PACLITAXEL
     Dosage: FREQUENCY TEXT: DAY 1 AND 8?162 MG?DURATION TEXT : CYCLE 3
     Route: 042
     Dates: start: 20161215
  5. ABRAXANE [Suspect]
     Active Substance: PACLITAXEL
     Dosage: FREQUENCY TEXT: NOT PROVIDED?211 MG/M2?DURATION TEXT : CYCLE 3
     Route: 042
     Dates: start: 201609
  6. ABRAXANE [Suspect]
     Active Substance: PACLITAXEL
     Dosage: FREQUENCY TEXT: NOT PROVIDED?104  MG/M2?DURATION TEXT : CYCLE 3
     Route: 042
     Dates: start: 201609
  7. ABRAXANE [Suspect]
     Active Substance: PACLITAXEL
     Dosage: FREQUENCY TEXT: NOT PROVIDED?200  MG/M2?DURATION TEXT : CYCLE 3
     Route: 042
     Dates: start: 201610
  8. ABRAXANE [Suspect]
     Active Substance: PACLITAXEL
     Dosage: FREQUENCY TEXT: CYCLE DAY 1, 8 AND 15?526 MILLIGRAM/SQ. METER
     Route: 042
     Dates: start: 20161012
  9. ABRAXANE [Suspect]
     Active Substance: PACLITAXEL
     Dosage: FREQUENCY TEXT: NOT PROVIDED?163  MG/M2?DURATION TEXT : CYCLE 3
     Route: 042
     Dates: start: 201610
  10. ABRAXANE [Suspect]
     Active Substance: PACLITAXEL
     Dosage: FREQUENCY TEXT: NOT PROVIDED?842 MG/M2?DURATION TEXT : CYCLE 3
     Route: 042
     Dates: start: 201610
  11. ABRAXANE [Suspect]
     Active Substance: PACLITAXEL
     Dosage: FREQUENCY TEXT: NOT PROVIDED?161  MG/M2?DURATION TEXT : CYCLE 3
     Route: 042
     Dates: start: 201611
  12. ABRAXANE [Suspect]
     Active Substance: PACLITAXEL
     Dosage: FREQUENCY TEXT: NOT PROVIDED?485  MG/M2?DURATION TEXT : CYCLE 3
     Route: 042
     Dates: start: 201611
  13. ABRAXANE [Suspect]
     Active Substance: PACLITAXEL
     Dosage: FREQUENCY TEXT: NOT PROVIDED?776 MG/M2?DURATION TEXT : CYCLE 3
     Route: 042
     Dates: start: 201611
  14. ABRAXANE [Suspect]
     Active Substance: PACLITAXEL
     Dosage: FREQUENCY TEXT: NOT PROVIDED?119 MG/M2?DURATION TEXT : CYCLE 3
     Route: 042
     Dates: start: 20170112
  15. ABRAXANE [Suspect]
     Active Substance: PACLITAXEL
     Dosage: FREQUENCY TEXT: NOT PROVIDED?190 MG/M2?DURATION TEXT : CYCLE 3
     Route: 042
     Dates: start: 201701, end: 20170210
  16. GEMCITABINE [Suspect]
     Active Substance: GEMCITABINE
     Indication: Pancreatic carcinoma
     Dosage: FREQUENCY TEXT: DAY 1 AND 8?2533 MILLIGRAM/SQ. METER
     Route: 065
     Dates: start: 20160921
  17. GEMCITABINE [Suspect]
     Active Substance: GEMCITABINE
     Dosage: FREQUENCY TEXT: DAY 1, 8 AND 15?4913 MILLIGRAM/SQ. METER
     Route: 065
     Dates: start: 20161012
  18. GEMCITABINE [Suspect]
     Active Substance: GEMCITABINE
     Dosage: FREQUENCY TEXT: DAY 1, 8 AND 15?1289 MILLIGRAM/SQ. METER?DURATION TEXT : CYCLE 3
     Route: 065
     Dates: start: 20161117
  19. GEMCITABINE [Suspect]
     Active Substance: GEMCITABINE
     Dosage: FREQUENCY TEXT: DAY 1, 8 AND 15?1304.29 MG?DURATION TEXT : CYCLE 3
     Route: 065
     Dates: start: 20161215
  20. GEMCITABINE [Suspect]
     Active Substance: GEMCITABINE
     Dosage: FREQUENCY TEXT: NOT PROVIDED?1691 MILLIGRAM/SQ. METER
     Route: 065
     Dates: start: 201609
  21. GEMCITABINE [Suspect]
     Active Substance: GEMCITABINE
     Dosage: FREQUENCY TEXT: NOT PROVIDED?842 MILLIGRAM/SQ. METER
     Route: 065
     Dates: start: 201609
  22. GEMCITABINE [Suspect]
     Active Substance: GEMCITABINE
     Dosage: FREQUENCY TEXT: NOT PROVIDED?4306 MILLIGRAM/SQ. METER
     Route: 065
     Dates: start: 201609
  23. GEMCITABINE [Suspect]
     Active Substance: GEMCITABINE
     Dosage: FREQUENCY TEXT: NOT PROVIDED?1635 MILLIGRAM/SQ. METER
     Route: 065
     Dates: start: 201610
  24. GEMCITABINE [Suspect]
     Active Substance: GEMCITABINE
     Dosage: FREQUENCY TEXT: NOT PROVIDED?1636 MILLIGRAM/SQ. METER
     Route: 065
     Dates: start: 201610
  25. GEMCITABINE [Suspect]
     Active Substance: GEMCITABINE
     Dosage: FREQUENCY TEXT: NOT PROVIDED?1642 MILLIGRAM/SQ. METER
     Route: 065
     Dates: start: 201610
  26. GEMCITABINE [Suspect]
     Active Substance: GEMCITABINE
     Dosage: FREQUENCY TEXT: NOT PROVIDED?7861 MILLIGRAM/SQ. METER
     Route: 065
     Dates: start: 201610
  27. GEMCITABINE [Suspect]
     Active Substance: GEMCITABINE
     Dosage: FREQUENCY TEXT: NOT PROVIDED?1295 MILLIGRAM/SQ. METER
     Route: 065
     Dates: start: 201611
  28. GEMCITABINE [Suspect]
     Active Substance: GEMCITABINE
     Dosage: FREQUENCY TEXT: NOT PROVIDED?3888 MILLIGRAM/SQ. METER
     Route: 065
     Dates: start: 201611
  29. GEMCITABINE [Suspect]
     Active Substance: GEMCITABINE
     Dosage: FREQUENCY TEXT: NOT PROVIDED?6221 MILLIGRAM/SQ. METER
     Route: 065
     Dates: start: 201611
  30. GEMCITABINE [Suspect]
     Active Substance: GEMCITABINE
     Dosage: FREQUENCY TEXT: NOT PROVIDED?963 MILLIGRAM/SQ. METER
     Route: 065
     Dates: start: 201611
  31. GEMCITABINE [Suspect]
     Active Substance: GEMCITABINE
     Dosage: FREQUENCY TEXT: NOT PROVIDED?1218 MILLIGRAM/SQ. METER
     Route: 065
     Dates: start: 20170112
  32. GEMCITABINE [Suspect]
     Active Substance: GEMCITABINE
     Dosage: FREQUENCY TEXT: NOT PROVIDED?1209 MILLIGRAM/SQ. METER
     Route: 065
     Dates: start: 201701
  33. GEMCITABINE [Suspect]
     Active Substance: GEMCITABINE
     Dosage: FREQUENCY TEXT: NOT PROVIDED?3390 MILLIGRAM/SQ. METER
     Route: 065
     Dates: start: 201701
  34. GEMCITABINE [Suspect]
     Active Substance: GEMCITABINE
     Dosage: FREQUENCY TEXT: NOT PROVIDED?5424 MILLIGRAM/SQ. METER
     Route: 065
     Dates: start: 201701, end: 20170210
  35. NEXIUM [Concomitant]
     Active Substance: ESOMEPRAZOLE MAGNESIUM
     Indication: Product used for unknown indication
     Dosage: 80 MILLIGRAM
     Route: 065
  36. kgdal [Concomitant]
     Indication: Product used for unknown indication
     Dosage: FREQUENCY TEXT: 1-0-1?4 MILLIGRAM
     Route: 065

REACTIONS (4)
  - Anastomotic ulcer [Recovered/Resolved]
  - Anaemia [Recovered/Resolved]
  - Neutropenia [Recovered/Resolved]
  - Leukopenia [Recovered/Resolved]

NARRATIVE: CASE EVENT DATE: 20160928
